FAERS Safety Report 5262178-X (Version None)
Quarter: 2007Q1

REPORT INFORMATION
  Report Type: 
  Country: None (occurrence: None)
  Receive Date: 20070312
  Receipt Date: 20070306
  Transmission Date: 20070707
  Serious: Yes (Other)
  Sender: FDA-Public Use
  Company Number: JP-BRACCO-BRO-011523

PATIENT
  Age: 74 Year
  Sex: Female

DRUGS (3)
  1. IOPAMIRON [Suspect]
     Indication: ARTERIOGRAM CORONARY
     Route: 050
     Dates: start: 20070126, end: 20070126
  2. IOPAMIRON [Suspect]
     Route: 050
     Dates: start: 20070126, end: 20070126
  3. TICLOPIDINE HCL [Concomitant]
     Route: 050

REACTIONS (1)
  - ERYTHEMA MULTIFORME [None]
